FAERS Safety Report 9162501 (Version 3)
Quarter: 2013Q2

REPORT INFORMATION
  Report Type: Spontaneous
  Country: US (occurrence: US)
  Receive Date: 20130314
  Receipt Date: 20130517
  Transmission Date: 20140414
  Serious: Yes (Death)
  Sender: FDA-Public Use
  Company Number: US-009507513-1303USA006517

PATIENT
  Age: 59 Year
  Sex: Male
  Weight: 79.82 kg

DRUGS (3)
  1. EMEND [Suspect]
     Indication: PROPHYLAXIS OF NAUSEA AND VOMITING
     Dosage: 1 DF, QD
     Route: 048
     Dates: start: 201212
  2. LISINOPRIL [Concomitant]
  3. HYDROMORPHONE [Concomitant]

REACTIONS (2)
  - Disease progression [Fatal]
  - Inappropriate schedule of drug administration [Unknown]
